FAERS Safety Report 4953822-2 (Version None)
Quarter: 2006Q1

REPORT INFORMATION
  Report Type: 
  Country: None (occurrence: None)
  Receive Date: 20060324
  Receipt Date: 20060324
  Transmission Date: 20060701
  Serious: No
  Sender: FDA-Public Use
  Company Number: None

PATIENT
  Age: 55 Year
  Sex: Female
  Weight: 77.1115 kg

DRUGS (2)
  1. ZICAM NASAL SPRAY GEL           MATRIXX CORPORATION [Suspect]
     Indication: NASOPHARYNGITIS
     Dosage: ONE SPRAY   DONE ONLY ONCE    NASAL
     Route: 045
     Dates: start: 20060304, end: 20060304
  2. ZICAM NASAL SPRAY GEL           MATRIXX CORPORATION [Suspect]
     Indication: PROPHYLAXIS
     Dosage: ONE SPRAY   DONE ONLY ONCE    NASAL
     Route: 045
     Dates: start: 20060304, end: 20060304

REACTIONS (3)
  - AGEUSIA [None]
  - ANOSMIA [None]
  - NASAL DISCOMFORT [None]
